FAERS Safety Report 25215973 (Version 1)
Quarter: 2025Q2

REPORT INFORMATION
  Report Type: Report from Study
  Country: AU (occurrence: AU)
  Receive Date: 20250418
  Receipt Date: 20250418
  Transmission Date: 20250716
  Serious: Yes (Other)
  Sender: UCB
  Company Number: AU-UCBSA-2025019932

PATIENT
  Sex: Female

DRUGS (2)
  1. BIMEKIZUMAB [Suspect]
     Active Substance: BIMEKIZUMAB
     Indication: Psoriatic arthropathy
     Dosage: 160 MILLIGRAM, EV 4 WEEKS
     Route: 058
     Dates: start: 20250321
  2. METHOTREXATE [Suspect]
     Active Substance: METHOTREXATE
     Indication: Product used for unknown indication

REACTIONS (8)
  - Fall [Not Recovered/Not Resolved]
  - Head injury [Not Recovered/Not Resolved]
  - Muscular weakness [Not Recovered/Not Resolved]
  - Balance disorder [Not Recovered/Not Resolved]
  - Nausea [Not Recovered/Not Resolved]
  - Pain [Not Recovered/Not Resolved]
  - Eye disorder [Not Recovered/Not Resolved]
  - Skin abrasion [Not Recovered/Not Resolved]

NARRATIVE: CASE EVENT DATE: 20250101
